FAERS Safety Report 13342819 (Version 1)
Quarter: 2017Q1

REPORT INFORMATION
  Report Type: Report from Study
  Country: US (occurrence: US)
  Receive Date: 20170316
  Receipt Date: 20170316
  Transmission Date: 20170428
  Serious: No
  Sender: FDA-Public Use
  Company Number: US-REGENERON PHARMACEUTICALS, INC.-2016-22955

PATIENT

DRUGS (1)
  1. ARCALYST [Suspect]
     Active Substance: RILONACEPT
     Indication: PRODUCT USED FOR UNKNOWN INDICATION
     Dosage: 220 MG MILLIGRAM(S), SDV/INJ PWD 2 RECONSTITUTED INJECTIONS OF 160 MY UNDER THE SKIN ONCE WEEKLY

REACTIONS (1)
  - Cystitis [Unknown]
